FAERS Safety Report 21833175 (Version 2)
Quarter: 2023Q1

REPORT INFORMATION
  Report Type: Report from Study
  Country: DE (occurrence: DE)
  Receive Date: 20230106
  Receipt Date: 20230317
  Transmission Date: 20230417
  Serious: Yes (Hospitalization)
  Sender: FDA-Public Use
  Company Number: DE-EVEREST MEDICINES II (HK) LIMITED-2023-0611449

PATIENT
  Sex: Male
  Weight: 61 kg

DRUGS (22)
  1. SACITUZUMAB GOVITECAN-HZIY [Suspect]
     Active Substance: SACITUZUMAB GOVITECAN-HZIY
     Indication: Non-small cell lung cancer
     Dosage: 620 MG
     Route: 042
     Dates: start: 20221130, end: 20221130
  2. SACITUZUMAB GOVITECAN-HZIY [Suspect]
     Active Substance: SACITUZUMAB GOVITECAN-HZIY
     Dosage: 620 MG
     Route: 042
     Dates: start: 20221207, end: 20221207
  3. SACITUZUMAB GOVITECAN-HZIY [Suspect]
     Active Substance: SACITUZUMAB GOVITECAN-HZIY
     Dosage: 620 MG
     Route: 042
     Dates: start: 20221221, end: 20221221
  4. SACITUZUMAB GOVITECAN-HZIY [Suspect]
     Active Substance: SACITUZUMAB GOVITECAN-HZIY
     Dosage: 550 MG
     Route: 042
     Dates: start: 20230104, end: 20230104
  5. ACETAMINOPHEN [Concomitant]
     Active Substance: ACETAMINOPHEN
     Indication: Prophylaxis
     Dosage: UNK
     Route: 048
     Dates: start: 20221227
  6. ACETAMINOPHEN [Concomitant]
     Active Substance: ACETAMINOPHEN
     Indication: Back pain
     Dosage: UNK
     Route: 048
     Dates: start: 20221130, end: 20230104
  7. DEXAMETHASONE [Concomitant]
     Active Substance: DEXAMETHASONE
     Indication: Prophylaxis
     Dosage: UNK
     Route: 048
     Dates: start: 20221130, end: 20230104
  8. ONDANSETRON [Concomitant]
     Active Substance: ONDANSETRON
     Indication: Prophylaxis
     Dosage: UNK
     Route: 042
     Dates: start: 20221130, end: 20230104
  9. CLEMASTINE [Concomitant]
     Active Substance: CLEMASTINE
     Indication: Prophylaxis
     Dosage: UNK
     Route: 042
     Dates: start: 20221130, end: 20230104
  10. RANITIDINE HYDROCHLORIDE [Concomitant]
     Active Substance: RANITIDINE HYDROCHLORIDE
     Indication: Prophylaxis
     Dosage: UNK
     Route: 042
     Dates: start: 20221130, end: 20230104
  11. ACETAMINOPHEN\CODEINE PHOSPHATE [Concomitant]
     Active Substance: ACETAMINOPHEN\CODEINE PHOSPHATE
     Indication: Cough
     Route: 048
     Dates: start: 20221129, end: 20221201
  12. ARIXTRA [Concomitant]
     Active Substance: FONDAPARINUX SODIUM
     Indication: Prophylaxis
     Route: 058
     Dates: start: 20221130, end: 20221130
  13. EMSER SOLE [Concomitant]
     Indication: Cough
     Route: 055
     Dates: start: 20221206
  14. EMSER SOLE [Concomitant]
     Route: 055
     Dates: start: 20221206, end: 20221223
  15. NADROPARIN CALCIUM [Concomitant]
     Active Substance: NADROPARIN CALCIUM
     Indication: Prophylaxis
     Route: 058
     Dates: start: 20221223, end: 20221224
  16. CODEINE [Concomitant]
     Active Substance: CODEINE
     Indication: Cough
     Route: 048
     Dates: start: 20221227
  17. DIAZEPAM [Concomitant]
     Active Substance: DIAZEPAM
     Indication: Myalgia
     Route: 048
     Dates: start: 20221227
  18. BECLOMETHASONE DIPROPIONATE\FORMOTEROL FUMARATE\GLYCOPYRROLATE [Concomitant]
     Active Substance: BECLOMETHASONE DIPROPIONATE\FORMOTEROL FUMARATE\GLYCOPYRROLATE
     Indication: Dyspnoea
     Route: 055
     Dates: start: 20221227
  19. POTASSIUM CHLORIDE [Concomitant]
     Active Substance: POTASSIUM CHLORIDE
     Indication: Hypokalaemia
     Route: 048
     Dates: start: 20221227, end: 20221230
  20. JONOSTERIL [CALCIUM CHLORIDE DIHYDRATE;POTASSIUM CHLORIDE;SODIUM LACTA [Concomitant]
     Indication: Hypercalcaemia
     Route: 042
     Dates: start: 20221227, end: 20221228
  21. FUROSEMIDE [Concomitant]
     Active Substance: FUROSEMIDE
     Indication: Hypercalcaemia
     Route: 042
     Dates: start: 20221227, end: 20221228
  22. ZOMETA [Concomitant]
     Active Substance: ZOLEDRONIC ACID
     Indication: Prophylaxis
     Route: 042
     Dates: start: 20221227, end: 20221227

REACTIONS (2)
  - General physical health deterioration [Recovered/Resolved]
  - Back pain [Recovered/Resolved]

NARRATIVE: CASE EVENT DATE: 20221221
